FAERS Safety Report 21563279 (Version 2)
Quarter: 2022Q4

REPORT INFORMATION
  Report Type: Report from Study
  Country: US (occurrence: US)
  Receive Date: 20221107
  Receipt Date: 20221215
  Transmission Date: 20230113
  Serious: Yes (Other)
  Sender: FDA-Public Use
  Company Number: US-ABBVIE-22K-163-4431329-00

PATIENT
  Age: 48 Year
  Sex: Male

DRUGS (3)
  1. HUMIRA [Suspect]
     Active Substance: ADALIMUMAB
     Indication: Crohn^s disease
     Dosage: TIME INTERVAL: 1 TOTAL: DAY ONE-2 PEN?80 MILLIGRAM
     Route: 058
     Dates: start: 20211108, end: 20211108
  2. HUMIRA [Suspect]
     Active Substance: ADALIMUMAB
     Dosage: TIME INTERVAL: 1 TOTAL: DAY 15-1 PEN?80 MILLIGRAM
     Route: 058
     Dates: start: 20211122, end: 20211122
  3. HUMIRA [Suspect]
     Active Substance: ADALIMUMAB
     Dosage: DAY 29?80 MILLIGRAM
     Route: 058
     Dates: start: 20211206, end: 20211206

REACTIONS (14)
  - Gallbladder operation [Unknown]
  - Fatigue [Not Recovered/Not Resolved]
  - Loss of personal independence in daily activities [Unknown]
  - Device leakage [Recovered/Resolved]
  - Diarrhoea [Not Recovered/Not Resolved]
  - Device leakage [Unknown]
  - Drug ineffective [Unknown]
  - Depressed mood [Unknown]
  - Insomnia [Unknown]
  - Anxiety [Unknown]
  - Asthenia [Unknown]
  - Unevaluable event [Unknown]
  - Nausea [Unknown]
  - Abdominal distension [Unknown]

NARRATIVE: CASE EVENT DATE: 20220801
